FAERS Safety Report 14839159 (Version 7)
Quarter: 2018Q4

REPORT INFORMATION
  Report Type: Report from Study
  Country: None (occurrence: IT)
  Receive Date: 20180502
  Receipt Date: 20181206
  Transmission Date: 20190204
  Serious: Yes (Hospitalization)
  Sender: FDA-Public Use
  Company Number: IT-ABBVIE-18P-083-2338648-00

PATIENT
  Age: 75 Year
  Sex: Female
  Weight: 63 kg

DRUGS (17)
  1. AZACITIDINE. [Suspect]
     Active Substance: AZACITIDINE
     Dosage: DAILY FOR 7 DAYS OF A 28 DAY CYCLE
     Route: 058
     Dates: start: 20180509
  2. HEPILOR [Concomitant]
     Indication: PROPHYLAXIS
     Route: 048
     Dates: start: 20180416
  3. LAEVOLAC [Concomitant]
     Active Substance: LACTULOSE
     Indication: CONSTIPATION PROPHYLAXIS
     Dosage: 1SPOON
     Route: 048
     Dates: start: 20180404
  4. VENETOCLAX. [Suspect]
     Active Substance: VENETOCLAX
     Route: 048
     Dates: start: 20180401, end: 20180426
  5. PANTORC [Concomitant]
     Active Substance: PANTOPRAZOLE SODIUM
     Indication: PROPHYLAXIS
     Route: 048
     Dates: start: 20180315
  6. ALLOPURINOL. [Concomitant]
     Active Substance: ALLOPURINOL
     Indication: PROPHYLAXIS
     Route: 048
     Dates: start: 20180329, end: 20180405
  7. LEVOXACIN [Concomitant]
     Active Substance: LEVOFLOXACIN
     Indication: ANTIVIRAL PROPHYLAXIS
     Route: 048
     Dates: start: 20180315
  8. LAEVOLAC [Concomitant]
     Active Substance: LACTULOSE
     Dosage: 1SPOON
     Route: 048
     Dates: start: 20180427, end: 20180502
  9. NOXAFIL [Concomitant]
     Active Substance: POSACONAZOLE
     Indication: ANTIFUNGAL PROPHYLAXIS
     Route: 048
     Dates: start: 20180315, end: 20180912
  10. VENETOCLAX. [Suspect]
     Active Substance: VENETOCLAX
     Indication: ACUTE MYELOID LEUKAEMIA
     Route: 048
     Dates: start: 20180330, end: 20180330
  11. NORMAL SALINE SOLUTION (0.9% SODIUM CHLORIDE) [Concomitant]
     Indication: PROPHYLAXIS
     Route: 042
     Dates: start: 20180329, end: 20180405
  12. VENETOCLAX. [Suspect]
     Active Substance: VENETOCLAX
     Route: 048
     Dates: start: 20180509
  13. AZACITIDINE. [Suspect]
     Active Substance: AZACITIDINE
     Indication: ACUTE MYELOID LEUKAEMIA
     Dosage: DAILY FOR 7 DAYS OF A 28 DAY CYCLE
     Route: 058
     Dates: start: 20180330, end: 20180405
  14. MEGACE [Concomitant]
     Active Substance: MEGESTROL ACETATE
     Indication: DECREASED APPETITE
     Route: 048
     Dates: start: 20180416
  15. VENETOCLAX. [Suspect]
     Active Substance: VENETOCLAX
     Route: 048
     Dates: start: 20180331, end: 20180331
  16. TORVAST [Concomitant]
     Active Substance: ATORVASTATIN
     Indication: HYPERCHOLESTEROLAEMIA
     Route: 048
     Dates: start: 20180315, end: 20180720
  17. XANAX [Concomitant]
     Active Substance: ALPRAZOLAM
     Indication: ANXIETY
     Route: 048
     Dates: start: 20180313

REACTIONS (1)
  - Strangury [Recovered/Resolved]

NARRATIVE: CASE EVENT DATE: 20180426
